FAERS Safety Report 7386689-6 (Version None)
Quarter: 2011Q1

REPORT INFORMATION
  Report Type: 
  Country: None (occurrence: None)
  Receive Date: 20110331
  Receipt Date: 20110324
  Transmission Date: 20110831
  Serious: Yes (Other)
  Sender: FDA-Public Use
  Company Number: US-US-EMD SERONO, INC.-7034630

PATIENT
  Sex: Female

DRUGS (5)
  1. REBIF [Suspect]
     Indication: MULTIPLE SCLEROSIS
     Route: 058
     Dates: start: 20101117, end: 20101201
  2. LISINOPRIL [Concomitant]
     Indication: HYPERTENSION
     Dates: start: 20000101, end: 20110101
  3. LISINOPRIL [Concomitant]
     Dates: start: 20110101, end: 20110101
  4. REBIF [Suspect]
     Route: 058
     Dates: start: 20110103, end: 20110101
  5. LISINOPRIL [Concomitant]
     Dates: start: 20110101

REACTIONS (1)
  - BLOOD PRESSURE INCREASED [None]
